FAERS Safety Report 19905954 (Version 1)
Quarter: 2021Q4

REPORT INFORMATION
  Report Type: Spontaneous
  Country: FR (occurrence: FR)
  Receive Date: 20211001
  Receipt Date: 20211001
  Transmission Date: 20220303
  Serious: Yes (Death)
  Sender: FDA-Public Use
  Company Number: FR-PFIZER INC-2021619082

PATIENT
  Age: 17 Year
  Sex: Female

DRUGS (16)
  1. PREDNISONE [Suspect]
     Active Substance: PREDNISONE
     Indication: Product used for unknown indication
     Dosage: 60 MG/M2/DAY FROM DAY 1 TO DAY 7, CYTOREDUCTIVE PHASE
  2. PREDNISONE [Suspect]
     Active Substance: PREDNISONE
     Dosage: 60 MG/M2 FROM DAY 1 TO DAY 5, MAINTENANCE
  3. PREDNISONE [Suspect]
     Active Substance: PREDNISONE
     Dosage: 60 MG/M2/DAY FROM DAY 1 TO DAY 7, CONSECUTIVE COURSE, COPADM 1
  4. METHOTREXATE [Suspect]
     Active Substance: METHOTREXATE
     Indication: Product used for unknown indication
     Dosage: 3 G/M2/DAY ON DAY 1,  CONSOLIDATION PHASE
  5. METHOTREXATE [Suspect]
     Active Substance: METHOTREXATE
     Dosage: 3 G/M2/DAY ON DAY 1, CONSECUTIVE COURSE, COPADM 1
  6. CYTARABINE [Suspect]
     Active Substance: CYTARABINE
     Indication: Product used for unknown indication
     Dosage: 100 MG/M2/DAY FROM DAY 1 TO DAY 5 (24-H INFUSION), CONSOLIDATION PHASE
  7. DOXORUBICIN HYDROCHLORIDE [Suspect]
     Active Substance: DOXORUBICIN HYDROCHLORIDE
     Indication: Product used for unknown indication
     Dosage: 60 MG/M2/DAY ON DAY 2, CONSECUTIVE COURSE, COPADM 1
  8. DOXORUBICIN HYDROCHLORIDE [Suspect]
     Active Substance: DOXORUBICIN HYDROCHLORIDE
     Dosage: 60 MG/M2/DAY ON DAY 2, MAINTENANCE
  9. VINCRISTINE SULFATE [Suspect]
     Active Substance: VINCRISTINE SULFATE
     Indication: Product used for unknown indication
     Dosage: 2 MG/DAY ON DAY 1, CYTOREDUCTIVE PHASE
  10. VINCRISTINE SULFATE [Suspect]
     Active Substance: VINCRISTINE SULFATE
     Dosage: 2 MG/DAY ON DAY 1 AND DAY 6, CONSECUTIVE COURSE, COPADM 2
  11. VINCRISTINE SULFATE [Suspect]
     Active Substance: VINCRISTINE SULFATE
     Dosage: 2 MG/DAY ON DAY 1, CONSECUTIVE COURSE, COPADM 1
  12. VINCRISTINE SULFATE [Suspect]
     Active Substance: VINCRISTINE SULFATE
     Dosage: 2 MG/DAY ON DAY 1, MAINTENANCE
  13. CYCLOPHOSPHAMIDE [Suspect]
     Active Substance: CYCLOPHOSPHAMIDE
     Indication: Product used for unknown indication
     Dosage: 500 MG/M2/DAY FROM DAY 2 TO DAY 4, CONSECUTIVE COURSE, COPADM 1
  14. CYCLOPHOSPHAMIDE [Suspect]
     Active Substance: CYCLOPHOSPHAMIDE
     Dosage: 300 MG/M2/DAY ON DAY 1, CYTOREDUCTIVE PHASE
  15. CYCLOPHOSPHAMIDE [Suspect]
     Active Substance: CYCLOPHOSPHAMIDE
     Dosage: 1000 MG/M2/DAY FROM DAY 2 TO DAY 4, CONSECUTIVE COURSE,  COPADM 2
  16. CYCLOPHOSPHAMIDE [Suspect]
     Active Substance: CYCLOPHOSPHAMIDE
     Dosage: 500 MG/M2/DAY ON DAY 1 AND DAY 2, MAINTENANCE

REACTIONS (1)
  - Death [Fatal]
